FAERS Safety Report 9089301 (Version 1)
Quarter: 2013Q1

REPORT INFORMATION
  Report Type: Spontaneous
  Country: US (occurrence: US)
  Receive Date: 20130201
  Receipt Date: 20130201
  Transmission Date: 20140127
  Serious: No
  Sender: FDA-Public Use
  Company Number: US-PFIZER INC-2013036536

PATIENT
  Age: 45 Year
  Sex: Female

DRUGS (1)
  1. DEPO-PROVERA [Suspect]
     Indication: MENSTRUAL CYCLE MANAGEMENT
     Dosage: UNK

REACTIONS (3)
  - Off label use [Unknown]
  - Amenorrhoea [Unknown]
  - Epistaxis [Unknown]
